FAERS Safety Report 9393030 (Version 3)
Quarter: 2013Q3

REPORT INFORMATION
  Report Type: Report from Study
  Country: FR (occurrence: FR)
  Receive Date: 20130710
  Receipt Date: 20130718
  Transmission Date: 20140515
  Serious: Yes (Hospitalization)
  Sender: FDA-Public Use
  Company Number: FR-ROCHE-1241526

PATIENT
  Age: 71 Year
  Sex: Male
  Weight: 79 kg

DRUGS (5)
  1. VISMODEGIB [Suspect]
     Indication: CHRONIC LYMPHOCYTIC LEUKAEMIA
     Dosage: LAST DOSE ADMINISTERED BEFORE DIARRHEA, FEVER: 18/JUN/2013?LAST DOSE ADMINISTERED BEFORE KIDNEY FAIL
     Route: 065
     Dates: start: 20130617
  2. BISOPROLOL [Concomitant]
     Route: 065
     Dates: start: 200301
  3. BEFIZAL LP 400 [Concomitant]
     Indication: DYSLIPIDAEMIA
     Route: 065
     Dates: start: 201301, end: 20130620
  4. LERCANIDIPINE [Concomitant]
     Dosage: LERCANIDIPINE 20
     Route: 065
     Dates: start: 200301
  5. ALTEIS [Concomitant]
     Route: 065
     Dates: start: 200301, end: 20030620

REACTIONS (5)
  - Rash papular [Recovered/Resolved]
  - Diarrhoea [Recovered/Resolved]
  - Vomiting [Recovered/Resolved]
  - Pyrexia [Recovered/Resolved]
  - Renal failure [Recovered/Resolved]
